FAERS Safety Report 24184552 (Version 1)
Quarter: 2024Q3

REPORT INFORMATION
  Report Type: Spontaneous
  Country: US (occurrence: None)
  Receive Date: 20240807
  Receipt Date: 20240807
  Transmission Date: 20241017
  Serious: Yes (Death)
  Sender: Public
  Company Number: None

PATIENT
  Sex: Male

DRUGS (6)
  1. ULTOMIRIS [Suspect]
     Active Substance: RAVULIZUMAB-CWVZ
     Indication: Myasthenia gravis
     Dosage: OTHER QUANTITY : 33 ML (3300 MG);?OTHER FREQUENCY : EVERY 8 WEEKS;?
     Route: 042
     Dates: start: 20230405
  2. ALLANTOIN [Concomitant]
  3. DIGOXIN [Concomitant]
  4. LOVASTATIN [Concomitant]
  5. PROTONIX [Concomitant]
  6. VITAMIN D3 [Concomitant]

REACTIONS (1)
  - Death [None]
